FAERS Safety Report 4909471-5 (Version None)
Quarter: 2006Q1

REPORT INFORMATION
  Report Type: 
  Country: None (occurrence: None)
  Receive Date: 20060213
  Receipt Date: 20050718
  Transmission Date: 20060701
  Serious: Yes (Hospitalization, Disabling)
  Sender: FDA-Public Use
  Company Number: US-MERCK-0507USA02437

PATIENT
  Age: 62 Year
  Sex: Male
  Weight: 75 kg

DRUGS (5)
  1. VIOXX [Suspect]
     Indication: JOINT INJURY
     Route: 048
     Dates: start: 20011001, end: 20011116
  2. VIOXX [Suspect]
     Route: 048
     Dates: start: 20011121, end: 20020103
  3. VIOXX [Suspect]
     Route: 048
     Dates: start: 20021118, end: 20041001
  4. ASPIRIN [Concomitant]
     Route: 048
  5. PLETAL [Suspect]
     Indication: PERIPHERAL VASCULAR DISORDER
     Route: 048

REACTIONS (18)
  - ABDOMINAL DISCOMFORT [None]
  - ANGINA PECTORIS [None]
  - ANXIETY [None]
  - BRONCHITIS ACUTE [None]
  - CHRONIC OBSTRUCTIVE PULMONARY DISEASE [None]
  - CORONARY ARTERY DISEASE [None]
  - DIABETES MELLITUS NON-INSULIN-DEPENDENT [None]
  - DIZZINESS [None]
  - DRUG INEFFECTIVE [None]
  - EPISTAXIS [None]
  - HEADACHE [None]
  - HYPERLIPIDAEMIA [None]
  - MUSCULOSKELETAL PAIN [None]
  - MYOCARDIAL INFARCTION [None]
  - NON-SMALL CELL LUNG CANCER [None]
  - PALPITATIONS [None]
  - PERIPHERAL VASCULAR DISORDER [None]
  - RHINORRHOEA [None]
